FAERS Safety Report 9251094 (Version 1)
Quarter: 2013Q1

REPORT INFORMATION
  Report Type: Spontaneous
  Country: US (occurrence: None)
  Receive Date: 20130305
  Receipt Date: 20130305
  Transmission Date: 20140127
  Serious: Yes (Disabling)
  Sender: FDA-Public Use
  Company Number: 163-21880-12042533

PATIENT
  Age: 64 Year
  Sex: Female

DRUGS (4)
  1. REVLIMID [Suspect]
     Indication: PLASMA CELL MYELOMA
     Dosage: 01/10/2012 - 03/30/2012, 25 MG, DAYS 1-14 EVERY 21 DAYS, PO
  2. VELCADE [Suspect]
     Indication: PLASMA CELL MYELOMA
     Dosage: 01/2012 - 03/30/2012, 1.3 MG, DAYS 4, 8, 11
  3. DEXAMETHASONE (DEXAMETHASONE) [Concomitant]
  4. ACYCLOVIR (ACICLOVIR) [Concomitant]

REACTIONS (5)
  - Neuropathy peripheral [None]
  - Hypoaesthesia [None]
  - Pain in extremity [None]
  - Paraesthesia [None]
  - Muscle spasms [None]
